FAERS Safety Report 7782398-X (Version None)
Quarter: 2011Q3

REPORT INFORMATION
  Report Type: 
  Country: None (occurrence: None)
  Receive Date: 20110927
  Receipt Date: 20110914
  Transmission Date: 20111222
  Serious: Yes (Other)
  Sender: FDA-Public Use
  Company Number: US-ELI_LILLY_AND_COMPANY-US201109005314

PATIENT
  Age: 78 Year
  Sex: Female

DRUGS (1)
  1. PROZAC [Suspect]
     Indication: DEPRESSION
     Dosage: 40 MG, QD
     Route: 065

REACTIONS (2)
  - BUNDLE BRANCH BLOCK LEFT [None]
  - MYOCARDIAL INFARCTION [None]
